FAERS Safety Report 5347249-1 (Version None)
Quarter: 2007Q2

REPORT INFORMATION
  Report Type: 
  Country: None (occurrence: None)
  Receive Date: 20070606
  Receipt Date: 20070525
  Transmission Date: 20071010
  Serious: Yes (Disabling)
  Sender: FDA-Public Use
  Company Number: PHBS2006IE07456

PATIENT
  Age: 45 Year
  Sex: Male

DRUGS (3)
  1. GLEEVEC [Suspect]
     Indication: CHRONIC MYELOID LEUKAEMIA
     Dosage: 600 MG/D
     Dates: start: 20020501, end: 20030701
  2. GLEEVEC [Suspect]
     Dosage: 600 MG, QD
     Dates: start: 20030701, end: 20031215
  3. GLEEVEC [Suspect]
     Dosage: 400 MG, QD
     Dates: start: 20031216

REACTIONS (6)
  - LABORATORY TEST ABNORMAL [None]
  - MONONEUROPATHY MULTIPLEX [None]
  - MUSCLE SPASMS [None]
  - PARALYSIS [None]
  - PERONEAL NERVE PALSY [None]
  - WHEELCHAIR USER [None]
